FAERS Safety Report 9411466 (Version 3)
Quarter: 2013Q4

REPORT INFORMATION
  Report Type: Spontaneous
  Country: US (occurrence: US)
  Receive Date: 20130722
  Receipt Date: 20131113
  Transmission Date: 20140711
  Serious: Yes (Life-Threatening, Hospitalization, Disabling, Other)
  Sender: FDA-Public Use
  Company Number: US-MERCK-1307USA010692

PATIENT
  Age: 69 Year
  Sex: Female
  Weight: 61.22 kg

DRUGS (8)
  1. JANUVIA [Suspect]
     Indication: DIABETES MELLITUS
     Dosage: 100 MG, QD
     Route: 048
     Dates: start: 201109, end: 201306
  2. PLAVIX [Concomitant]
     Dosage: 75 MG, QD
  3. LEVOTHYROXINE SODIUM [Concomitant]
     Dosage: 112 MICROGRAM, QD
  4. CRESTOR [Concomitant]
     Dosage: 20 MG, QD
  5. PRINIVIL [Concomitant]
     Dosage: 10 MG, QD
  6. METOPROLOL [Concomitant]
     Dosage: 25 PO, BID
     Route: 048
  7. METFORMIN [Concomitant]
     Dosage: 1000, QD
  8. MARINOL [Concomitant]

REACTIONS (19)
  - Pancreatic cyst [Recovering/Resolving]
  - Pancreatitis chronic [Unknown]
  - Weight decreased [Unknown]
  - Stent placement [Recovering/Resolving]
  - Flatulence [Unknown]
  - Eructation [Unknown]
  - Lipase increased [Unknown]
  - Amylase increased [Unknown]
  - Dehydration [Not Recovered/Not Resolved]
  - Blood glucose abnormal [Unknown]
  - Oedema [Unknown]
  - Pain [Unknown]
  - Constipation [Unknown]
  - Temperature intolerance [Unknown]
  - Ecchymosis [Unknown]
  - Muscle atrophy [Unknown]
  - Fatigue [Unknown]
  - Gastrointestinal disorder [Unknown]
  - Renal disorder [Unknown]
